FAERS Safety Report 8169153-6 (Version None)
Quarter: 2012Q1

REPORT INFORMATION
  Report Type: 
  Country: None (occurrence: None)
  Receive Date: 20120227
  Receipt Date: 20120220
  Transmission Date: 20120608
  Serious: Yes (Death)
  Sender: FDA-Public Use
  Company Number: US-RB-036407-12

PATIENT
  Age: 67 Year
  Sex: Male

DRUGS (2)
  1. SUBOXONE [Suspect]
     Indication: DRUG DEPENDENCE
     Route: 060
     Dates: start: 20080101, end: 20111101
  2. HEROIN [Suspect]
     Indication: DRUG ABUSE
     Dosage: AMOUNT UNKNOWN.
     Route: 042
     Dates: start: 20111201, end: 20120106

REACTIONS (4)
  - DRUG ABUSE [None]
  - SUBSTANCE ABUSE [None]
  - UNDERDOSE [None]
  - EUPHORIC MOOD [None]
